FAERS Safety Report 5963747-1 (Version None)
Quarter: 2008Q4

REPORT INFORMATION
  Report Type: 
  Country: None (occurrence: None)
  Receive Date: 20081124
  Receipt Date: 20081120
  Transmission Date: 20090506
  Serious: Yes (Death, Other)
  Sender: FDA-Public Use
  Company Number: ES-WYE-G02551008

PATIENT
  Age: 60 Year
  Sex: Male

DRUGS (2)
  1. RAPAMUNE [Suspect]
     Indication: LUNG TRANSPLANT
     Route: 048
     Dates: start: 20081017
  2. TACROLIMUS [Concomitant]
     Indication: LUNG TRANSPLANT
     Dosage: UNKNOWN
     Dates: start: 20080701

REACTIONS (3)
  - CONDITION AGGRAVATED [None]
  - HAEMOLYTIC URAEMIC SYNDROME [None]
  - HAEMORRHAGE [None]
